FAERS Safety Report 16786843 (Version 1)
Quarter: 2019Q3

REPORT INFORMATION
  Report Type: Spontaneous
  Country: US (occurrence: US)
  Receive Date: 20190909
  Receipt Date: 20190909
  Transmission Date: 20191005
  Serious: No
  Sender: FDA-Public Use
  Company Number: US-JNJFOC-20190907439

PATIENT
  Age: 40 Year
  Sex: Male
  Weight: 71.73 kg

DRUGS (3)
  1. PAXIL [Concomitant]
     Active Substance: PAROXETINE HYDROCHLORIDE
     Indication: DEPRESSION
     Dosage: ONCE DAILY IN MORNING
     Route: 048
  2. RISPERDAL CONSTA [Suspect]
     Active Substance: RISPERIDONE
     Indication: BEHAVIOUR DISORDER
     Route: 030
  3. DEPAKOTE [Concomitant]
     Active Substance: DIVALPROEX SODIUM
     Indication: DRUG THERAPY
     Dosage: AT BEDTIME
     Route: 048

REACTIONS (2)
  - Device breakage [Unknown]
  - Product dose omission [Unknown]

NARRATIVE: CASE EVENT DATE: 20190905
